FAERS Safety Report 15393849 (Version 3)
Quarter: 2018Q4

REPORT INFORMATION
  Report Type: Spontaneous
  Country: DE (occurrence: DE)
  Receive Date: 20180917
  Receipt Date: 20181015
  Transmission Date: 20190204
  Serious: Yes (Hospitalization)
  Sender: FDA-Public Use
  Company Number: DE-BIOGEN-2018BI00632497

PATIENT
  Age: 46 Year
  Sex: Female

DRUGS (3)
  1. TYSABRI [Suspect]
     Active Substance: NATALIZUMAB
     Indication: RELAPSING-REMITTING MULTIPLE SCLEROSIS
     Route: 042
     Dates: start: 20170704
  2. FERRLECIT [Suspect]
     Active Substance: SODIUM FERRIC GLUCONATE COMPLEX
     Indication: PANCREATIC CARCINOMA
     Route: 050
  3. NOVALGIN (METAMIZOLE SODIUM) [Interacting]
     Active Substance: METAMIZOLE SODIUM
     Indication: PANCREATIC CARCINOMA
     Dosage: 4 X 40.
     Route: 065

REACTIONS (4)
  - Hypokalaemia [Recovered/Resolved]
  - Pancreatic carcinoma [Unknown]
  - Urinary tract infection [Unknown]
  - Hypertension [Unknown]

NARRATIVE: CASE EVENT DATE: 20180911
